FAERS Safety Report 5630748-2 (Version None)
Quarter: 2008Q1

REPORT INFORMATION
  Report Type: 
  Country: None (occurrence: None)
  Receive Date: 20080213
  Receipt Date: 20080204
  Transmission Date: 20080703
  Serious: Yes (Death)
  Sender: FDA-Public Use
  Company Number: 2008-01054

PATIENT
  Age: 31 Year
  Sex: Male

DRUGS (3)
  1. ALPRAZOLAM [Suspect]
  2. DEXTROMETHORPHAN HYDROBROMIDE [Suspect]
  3. ETHANOL(ETHANOL) [Suspect]

REACTIONS (1)
  - CARDIO-RESPIRATORY ARREST [None]
